FAERS Safety Report 9097541 (Version 2)
Quarter: 2014Q2

REPORT INFORMATION
  Report Type: Spontaneous
  Country: US (occurrence: US)
  Receive Date: 20130212
  Receipt Date: 20140501
  Transmission Date: 20141212
  Serious: Yes (Congenital Anomaly, Other)
  Sender: FDA-Public Use
  Company Number: US-PFIZER INC-2013056792

PATIENT
  Sex: Male

DRUGS (4)
  1. ZOLOFT [Suspect]
     Indication: ANXIETY
     Dosage: UNK
     Route: 064
     Dates: start: 1998
  2. ZOLOFT [Suspect]
     Dosage: UNK
     Route: 064
     Dates: start: 200902
  3. PRENATAL VITAMINS [Concomitant]
     Dosage: UNK
     Route: 064
  4. FOLIC ACID [Concomitant]
     Dosage: UNK
     Route: 064

REACTIONS (4)
  - Maternal exposure during pregnancy [Unknown]
  - Urethral valves [Unknown]
  - Hydronephrosis [Unknown]
  - Premature baby [Unknown]
